FAERS Safety Report 9820606 (Version 3)
Quarter: 2014Q1

REPORT INFORMATION
  Report Type: Spontaneous
  Country: US (occurrence: US)
  Receive Date: 20140116
  Receipt Date: 20140210
  Transmission Date: 20141002
  Serious: Yes (Hospitalization)
  Sender: FDA-Public Use
  Company Number: US-JNJFOC-20140104161

PATIENT
  Age: 67 Year
  Sex: Female
  Weight: 109.32 kg

DRUGS (1)
  1. XARELTO [Suspect]
     Indication: THROMBOSIS PROPHYLAXIS
     Dosage: 15MG TWICE A DAY AND 20 MG ONCE A DAY TOTALLY 50 MG PER DAY
     Route: 048
     Dates: start: 201311

REACTIONS (4)
  - Haemoglobin decreased [Unknown]
  - Blood urine present [Recovered/Resolved]
  - Overdose [Unknown]
  - Renal haemorrhage [Unknown]
